FAERS Safety Report 9635903 (Version 2)
Quarter: 2014Q2

REPORT INFORMATION
  Report Type: Spontaneous
  Country: US (occurrence: US)
  Receive Date: 20131021
  Receipt Date: 20140619
  Transmission Date: 20141212
  Serious: No
  Sender: FDA-Public Use
  Company Number: US-009507513-1310USA007964

PATIENT
  Sex: Female

DRUGS (1)
  1. NUVARING [Suspect]
     Dosage: UNK
     Route: 067
     Dates: start: 2009, end: 2012

REACTIONS (3)
  - Splenic artery aneurysm [Unknown]
  - Haemangioma of liver [Unknown]
  - Aneurysm [Unknown]
